FAERS Safety Report 4312308-9 (Version None)
Quarter: 2004Q1

REPORT INFORMATION
  Report Type: 
  Country: None (occurrence: None)
  Receive Date: 20040305
  Receipt Date: 20040220
  Transmission Date: 20041129
  Serious: Yes (Death)
  Sender: FDA-Public Use
  Company Number: FR-GLAXOSMITHKLINE-B0324472A

PATIENT
  Sex: Female

DRUGS (1)
  1. RANIPLEX [Suspect]
     Route: 065

REACTIONS (2)
  - DEATH [None]
  - WHITE BLOOD CELL COUNT DECREASED [None]
